FAERS Safety Report 18616795 (Version 3)
Quarter: 2024Q3

REPORT INFORMATION
  Report Type: Spontaneous
  Country: JP (occurrence: JP)
  Receive Date: 20201215
  Receipt Date: 20240705
  Transmission Date: 20241017
  Serious: Yes (Other)
  Sender: TEVA
  Company Number: JP-ASTELLAS-2020US043718

PATIENT
  Age: 68 Year
  Sex: Male

DRUGS (28)
  1. BENDAMUSTINE HYDROCHLORIDE [Suspect]
     Active Substance: BENDAMUSTINE HYDROCHLORIDE
     Indication: Follicular lymphoma
     Dosage: DOSAGE TEXT:  (FIRST CYCLE: DAY 4 AND DAY 5)
     Route: 042
     Dates: start: 20180604, end: 20180605
  2. BENDAMUSTINE HYDROCHLORIDE [Suspect]
     Active Substance: BENDAMUSTINE HYDROCHLORIDE
     Indication: Follicular lymphoma
     Dosage: DOSAGE TEXT:  (SECOND CYCLE: DAY 2 AND DAY 3)
     Route: 042
     Dates: start: 20180703, end: 20180704
  3. BENDAMUSTINE HYDROCHLORIDE [Suspect]
     Active Substance: BENDAMUSTINE HYDROCHLORIDE
     Indication: Follicular lymphoma
     Dosage: DOSAGE TEXT:  (3RD CYCLE: DAY 2 AND DAY 3)
     Route: 042
     Dates: start: 20180731, end: 20180801
  4. BENDAMUSTINE HYDROCHLORIDE [Suspect]
     Active Substance: BENDAMUSTINE HYDROCHLORIDE
     Indication: Follicular lymphoma
     Dosage: DOSAGE TEXT: (4TH CYCLE: DAY 16 AND DAY 17)
     Route: 042
     Dates: start: 20180917, end: 20180918
  5. BENDAMUSTINE HYDROCHLORIDE [Suspect]
     Active Substance: BENDAMUSTINE HYDROCHLORIDE
     Indication: Follicular lymphoma
     Dosage: DOSAGE TEXT:  (5TH CYCLE: DAY 2 AND DAY 3)
     Route: 042
     Dates: start: 20181010, end: 20181011
  6. BENDAMUSTINE HYDROCHLORIDE [Suspect]
     Active Substance: BENDAMUSTINE HYDROCHLORIDE
     Indication: Follicular lymphoma
     Dosage: DOSAGE TEXT: (6TH CYCLE: DAY 2 AND DAY 3)
     Route: 042
     Dates: start: 20181107, end: 20181108
  7. MAGNESIUM OXIDE [Concomitant]
     Active Substance: MAGNESIUM OXIDE
     Indication: Product used for unknown indication
     Route: 065
  8. POTASSIUM GLUCONATE [Concomitant]
     Active Substance: POTASSIUM GLUCONATE
     Indication: Product used for unknown indication
     Route: 065
  9. FOLIC ACID [Concomitant]
     Active Substance: FOLIC ACID
     Indication: Product used for unknown indication
     Route: 065
  10. VONOPRAZAN FUMARATE [Concomitant]
     Active Substance: VONOPRAZAN FUMARATE
     Indication: Product used for unknown indication
     Route: 065
  11. POLAPREZINC [Concomitant]
     Active Substance: POLAPREZINC
     Indication: Product used for unknown indication
     Route: 065
  12. MOSAPRIDE CITRATE [Concomitant]
     Active Substance: MOSAPRIDE CITRATE
     Indication: Product used for unknown indication
     Route: 065
  13. ASPIRIN [Concomitant]
     Active Substance: ASPIRIN
     Indication: Product used for unknown indication
     Route: 065
  14. FILGRASTIM [Concomitant]
     Active Substance: FILGRASTIM
     Indication: Product used for unknown indication
     Route: 065
  15. FOSCARNET SODIUM [Concomitant]
     Active Substance: FOSCARNET SODIUM
     Indication: Product used for unknown indication
     Route: 065
  16. RITUXIMAB [Suspect]
     Active Substance: RITUXIMAB
     Indication: Follicular lymphoma
     Dosage: TIME INTERVAL: CYCLICAL: DOSAGE TEXT:  (4TH CYCLE: DAY1)
     Route: 041
     Dates: start: 20180827
  17. RITUXIMAB [Suspect]
     Active Substance: RITUXIMAB
     Indication: Follicular lymphoma
     Dosage: TIME INTERVAL: CYCLICAL: DOSAGE TEXT: (5TH CYCLE: DAY1)
     Route: 041
     Dates: start: 20181009
  18. RITUXIMAB [Suspect]
     Active Substance: RITUXIMAB
     Indication: Follicular lymphoma
     Dosage: TIME INTERVAL: CYCLICAL: DOSAGE TEXT:  (6TH CYCLE: DAY1)
     Route: 041
     Dates: start: 20181106
  19. RITUXIMAB [Suspect]
     Active Substance: RITUXIMAB
     Indication: Follicular lymphoma
     Dosage: TIME INTERVAL: CYCLICAL: DOSAGE TEXT: (1ST CYCLE: DAY1)
     Route: 041
     Dates: start: 20180601
  20. RITUXIMAB [Suspect]
     Active Substance: RITUXIMAB
     Indication: Follicular lymphoma
     Dosage: TIME INTERVAL: CYCLICAL: DOSAGE TEXT:  (2ND CYCLE: DAY1)
     Route: 041
     Dates: start: 20180702
  21. RITUXIMAB [Suspect]
     Active Substance: RITUXIMAB
     Indication: Follicular lymphoma
     Dosage: TIME INTERVAL: CYCLICAL: DOSAGE TEXT:  (3RD CYCLE: DAY1)
     Route: 041
     Dates: start: 20180730
  22. OBINUTUZUMAB [Suspect]
     Active Substance: OBINUTUZUMAB
     Indication: Follicular lymphoma
     Dosage: TIME INTERVAL: CYCLICAL: DOSAGE TEXT:  (5 CYCLES)
     Route: 042
  23. DOXORUBICIN HYDROCHLORIDE [Suspect]
     Active Substance: DOXORUBICIN HYDROCHLORIDE
     Indication: Follicular lymphoma
     Dosage: TIME INTERVAL: CYCLICAL: DOSAGE TEXT:  (5 CYCLES)
     Route: 065
  24. CYCLOPHOSPHAMIDE [Suspect]
     Active Substance: CYCLOPHOSPHAMIDE
     Indication: Product used for unknown indication
     Dosage: TIME INTERVAL: CYCLICAL: DOSAGE TEXT: (5 CYCLES)
     Route: 065
  25. VINCRISTINE SULFATE [Suspect]
     Active Substance: VINCRISTINE SULFATE
     Indication: Follicular lymphoma
     Dosage: TIME INTERVAL: CYCLICAL: DOSAGE TEXT: (5 CYCLES)
     Route: 065
  26. LENALIDOMIDE [Suspect]
     Active Substance: LENALIDOMIDE
     Indication: Follicular lymphoma
     Dosage: TIME INTERVAL: CYCLICAL: DOSAGE TEXT: (6 CYCLES)
     Route: 065
  27. ENTECAVIR [Concomitant]
     Active Substance: ENTECAVIR
     Indication: Product used for unknown indication
     Route: 065
  28. SULFAMETHOXAZOLE [Concomitant]
     Active Substance: SULFAMETHOXAZOLE
     Indication: Product used for unknown indication
     Route: 065

REACTIONS (2)
  - Cytomegalovirus chorioretinitis [Recovered/Resolved]
  - Cytomegalovirus chorioretinitis [Not Recovered/Not Resolved]

NARRATIVE: CASE EVENT DATE: 20190326
